FAERS Safety Report 23339594 (Version 1)
Quarter: 2023Q4

REPORT INFORMATION
  Report Type: Spontaneous
  Country: CA (occurrence: None)
  Receive Date: 20231226
  Receipt Date: 20231226
  Transmission Date: 20240109
  Serious: Yes (Death)
  Sender: FDA-Public Use
  Company Number: 2023A292813

PATIENT
  Age: 81 Year
  Sex: Male
  Weight: 106 kg

DRUGS (16)
  1. DAPAGLIFLOZIN [Suspect]
     Active Substance: DAPAGLIFLOZIN
     Indication: Type 2 diabetes mellitus
     Route: 048
  2. DAPAGLIFLOZIN [Suspect]
     Active Substance: DAPAGLIFLOZIN
     Indication: Cardiac failure
     Route: 048
  3. BIMATOPROST [Concomitant]
     Active Substance: BIMATOPROST
  4. BISOPROLOL [Concomitant]
     Active Substance: BISOPROLOL\BISOPROLOL FUMARATE
  5. DUTASTERIDE [Concomitant]
     Active Substance: DUTASTERIDE
  6. MAGNESIUM OXIDE [Concomitant]
     Active Substance: MAGNESIUM OXIDE
  7. METFORMIN [Concomitant]
     Active Substance: METFORMIN HYDROCHLORIDE
  8. PANTOPRAZOLE [Concomitant]
     Active Substance: PANTOPRAZOLE
  9. PENTOXIFYLLINE [Concomitant]
     Active Substance: PENTOXIFYLLINE
  10. ROSUVASTATIN [Concomitant]
     Active Substance: ROSUVASTATIN
  11. SACUBITRIL\VALSARTAN [Concomitant]
     Active Substance: SACUBITRIL\VALSARTAN
  12. SILVER SULFADIAZINE [Concomitant]
     Active Substance: SILVER SULFADIAZINE
  13. SPIRONOLACTONE [Concomitant]
     Active Substance: SPIRONOLACTONE
  14. TAMSULOSIN [Concomitant]
     Active Substance: TAMSULOSIN
  15. WARFARIN [Concomitant]
     Active Substance: WARFARIN
  16. FUROSEMIDE [Concomitant]
     Active Substance: FUROSEMIDE

REACTIONS (6)
  - Hypotension [Fatal]
  - Multi-organ disorder [Fatal]
  - Organ failure [Fatal]
  - Euglycaemic diabetic ketoacidosis [Fatal]
  - Ketoacidosis [Fatal]
  - Metabolic acidosis [Fatal]
